FAERS Safety Report 7688736-0 (Version None)
Quarter: 2011Q3

REPORT INFORMATION
  Report Type: 
  Country: None (occurrence: None)
  Receive Date: 20110817
  Receipt Date: 20110808
  Transmission Date: 20111222
  Serious: Yes (Other)
  Sender: FDA-Public Use
  Company Number: JP-TEVA-296254ISR

PATIENT
  Age: 11 Year
  Sex: Male

DRUGS (3)
  1. ETOPOSIDE [Suspect]
     Indication: GERM CELL CANCER
     Dosage: FOR 5 CONSECUTIVE DAYS.
  2. CISPLATIN [Suspect]
     Indication: GERM CELL CANCER
     Dosage: FOR 5 DAYS CONSECUTIVE DAYS.
  3. IFOSFAMIDE [Suspect]
     Indication: GERM CELL CANCER
     Dosage: FOR 5 CONSECUTIVE DAYS.

REACTIONS (2)
  - THROMBOCYTOPENIA [None]
  - LEUKOPENIA [None]
